FAERS Safety Report 21306774 (Version 2)
Quarter: 2022Q3

REPORT INFORMATION
  Report Type: Spontaneous
  Country: US (occurrence: US)
  Receive Date: 20220908
  Receipt Date: 20220916
  Transmission Date: 20221026
  Serious: No
  Sender: FDA-Public Use
  Company Number: US-PFIZER INC-202201135405

PATIENT
  Age: 66 Year
  Sex: Female
  Weight: 99.79 kg

DRUGS (3)
  1. PAXLOVID [Suspect]
     Active Substance: NIRMATRELVIR\RITONAVIR
     Indication: COVID-19 treatment
     Dosage: [PF-07321332 300 MG]/[RITONAVIR 100 MG]; 2X/DAY
     Dates: start: 20220902
  2. LOSARTAN [Concomitant]
     Active Substance: LOSARTAN
     Dosage: 100 MG, 1X/DAY
  3. THYROXINE [Concomitant]
     Active Substance: LEVOTHYROXINE
     Dosage: 185 MG, 1X/DAY

REACTIONS (7)
  - Hyperhidrosis [Not Recovered/Not Resolved]
  - Diarrhoea [Recovering/Resolving]
  - Dysgeusia [Not Recovered/Not Resolved]
  - Asthenia [Unknown]
  - Dizziness [Unknown]
  - Nausea [Unknown]
  - Sinus disorder [Unknown]

NARRATIVE: CASE EVENT DATE: 20220902
